FAERS Safety Report 15888195 (Version 1)
Quarter: 2019Q1

REPORT INFORMATION
  Report Type: Spontaneous
  Country: IT (occurrence: IT)
  Receive Date: 20190130
  Receipt Date: 20190130
  Transmission Date: 20190417
  Serious: Yes (Hospitalization)
  Sender: FDA-Public Use
  Company Number: IT-TEVA-2019-IT-1004589

PATIENT
  Age: 83 Year
  Sex: Female

DRUGS (3)
  1. LORMETAZEPAM [Suspect]
     Active Substance: LORMETAZEPAM
     Indication: SUICIDE ATTEMPT
     Route: 048
     Dates: start: 20181003, end: 20181003
  2. CITALOPRAM [Suspect]
     Active Substance: CITALOPRAM HYDROBROMIDE
     Indication: SUICIDE ATTEMPT
     Route: 048
     Dates: start: 20181003, end: 20181003
  3. LEXOTAN 6 MG CAPSULE RIGIDE [Suspect]
     Active Substance: BROMAZEPAM
     Indication: SUICIDE ATTEMPT
     Route: 048
     Dates: start: 20181003, end: 20181003

REACTIONS (4)
  - Benzodiazepine drug level increased [Unknown]
  - Bradycardia [Unknown]
  - Fall [Unknown]
  - Drug abuse [Unknown]

NARRATIVE: CASE EVENT DATE: 20181003
